FAERS Safety Report 7319607-7 (Version None)
Quarter: 2011Q1

REPORT INFORMATION
  Report Type: 
  Country: None (occurrence: None)
  Receive Date: 20110228
  Receipt Date: 20100610
  Transmission Date: 20110831
  Serious: No
  Sender: FDA-Public Use
  Company Number: A0864311A

PATIENT
  Sex: Female

DRUGS (2)
  1. LAMICTAL [Suspect]
     Indication: BIPOLAR DISORDER
     Route: 065
     Dates: start: 20091101
  2. NO CONCURRENT MEDICATION [Concomitant]

REACTIONS (3)
  - MOOD SWINGS [None]
  - DRUG INEFFECTIVE [None]
  - MALAISE [None]
